FAERS Safety Report 15787362 (Version 2)
Quarter: 2019Q1

REPORT INFORMATION
  Report Type: Spontaneous
  Country: JP (occurrence: JP)
  Receive Date: 20190103
  Receipt Date: 20190312
  Transmission Date: 20190417
  Serious: Yes (Other)
  Sender: FDA-Public Use
  Company Number: JP-SA-2019SA001583

PATIENT
  Age: 59 Year
  Sex: Female

DRUGS (7)
  1. ALPRAZOLAM. [Suspect]
     Active Substance: ALPRAZOLAM
     Indication: PRODUCT USED FOR UNKNOWN INDICATION
     Route: 048
  2. DOGMATYL [Suspect]
     Active Substance: SULPIRIDE
     Indication: PRODUCT USED FOR UNKNOWN INDICATION
     Route: 048
  3. GASMOTIN [Concomitant]
     Active Substance: MOSAPRIDE CITRATE
  4. MUCOSTA [Concomitant]
     Active Substance: REBAMIPIDE
  5. XYZAL [Suspect]
     Active Substance: LEVOCETIRIZINE DIHYDROCHLORIDE
     Indication: RHINITIS
     Dosage: 5 MG, QD
     Route: 048
     Dates: start: 201401
  6. OLMESARTAN [Concomitant]
     Active Substance: OLMESARTAN
  7. WYPAX [Concomitant]
     Active Substance: LORAZEPAM

REACTIONS (2)
  - Altered state of consciousness [Recovered/Resolved]
  - Language disorder [Recovered/Resolved]
